FAERS Safety Report 9999776 (Version 1)
Quarter: 2014Q1

REPORT INFORMATION
  Report Type: Spontaneous
  Country: FR (occurrence: FR)
  Receive Date: 20140312
  Receipt Date: 20140312
  Transmission Date: 20141002
  Serious: Yes (Hospitalization)
  Sender: FDA-Public Use
  Company Number: FR-SA-2014SA026605

PATIENT
  Age: 93 Year
  Sex: Female

DRUGS (11)
  1. LASILIX [Suspect]
     Indication: HYPERTENSION
     Route: 048
  2. AMLOR [Suspect]
     Indication: HYPERTENSION
     Route: 048
  3. SINGULAIR [Suspect]
     Indication: ASTHMA
     Route: 048
  4. TEMESTA [Suspect]
     Indication: ANXIETY
     Route: 048
  5. EBIXA [Suspect]
     Indication: DEMENTIA ALZHEIMER^S TYPE
     Route: 048
  6. NORMACOL [Concomitant]
     Route: 048
  7. PREVISCAN [Concomitant]
     Dosage: SCORED TABLET
  8. CALCIDOSE [Concomitant]
     Route: 048
  9. TRANSIPEG [Concomitant]
     Route: 048
  10. INEXIUM [Concomitant]
     Route: 048
  11. PARACETAMOL [Concomitant]
     Route: 048

REACTIONS (2)
  - Fall [Recovered/Resolved]
  - Femur fracture [Recovered/Resolved with Sequelae]
